FAERS Safety Report 21199247 (Version 1)
Quarter: 2022Q3

REPORT INFORMATION
  Report Type: Spontaneous
  Country: RO (occurrence: RO)
  Receive Date: 20220811
  Receipt Date: 20220811
  Transmission Date: 20221027
  Serious: Yes (Other)
  Sender: FDA-Public Use
  Company Number: RO-BRISTOL-MYERS SQUIBB COMPANY-2022-087961

PATIENT
  Age: 75 Year
  Sex: Male

DRUGS (3)
  1. NIVOLUMAB [Suspect]
     Active Substance: NIVOLUMAB
     Indication: Metastatic malignant melanoma
     Route: 065
     Dates: start: 201801, end: 201809
  2. NIVOLUMAB [Suspect]
     Active Substance: NIVOLUMAB
     Dosage: RESTARTED ON AN UNKNOWN DATE
     Route: 065
  3. ZOLEDRONIC ACID [Concomitant]
     Active Substance: ZOLEDRONIC ACID
     Dates: start: 201801

REACTIONS (2)
  - Cholestasis [Unknown]
  - Hepatic cytolysis [Unknown]
